FAERS Safety Report 8829195 (Version 2)
Quarter: 2012Q4

REPORT INFORMATION
  Report Type: Report from Study
  Country: US (occurrence: US)
  Receive Date: 20121008
  Receipt Date: 20121009
  Transmission Date: 20130627
  Serious: Yes (Death)
  Sender: FDA-Public Use
  Company Number: US-ABBOTT-12P-163-0991246-00

PATIENT
  Age: 73 Year
  Sex: Male
  Weight: 83.54 kg

DRUGS (6)
  1. LUPRON DEPOT 7.5 MG [Suspect]
     Indication: PRODUCT USED FOR UNKNOWN INDICATION
  2. CARDIZEM CD [Concomitant]
     Indication: PRODUCT USED FOR UNKNOWN INDICATION
  3. ZOCOR [Concomitant]
     Indication: PRODUCT USED FOR UNKNOWN INDICATION
  4. PRILOSEC [Concomitant]
     Indication: GASTROOESOPHAGEAL REFLUX DISEASE
  5. GLUCOPHAGE [Concomitant]
     Indication: DIABETES MELLITUS
  6. CELEXA [Concomitant]
     Indication: DEPRESSION
     Dates: start: 20120712

REACTIONS (16)
  - Cardiac arrest [Fatal]
  - Cardiomyopathy [Not Recovered/Not Resolved]
  - Left ventricular dysfunction [Not Recovered/Not Resolved]
  - Mitral valve incompetence [Not Recovered/Not Resolved]
  - Ejection fraction decreased [Not Recovered/Not Resolved]
  - Coronary artery disease [Not Recovered/Not Resolved]
  - Malaise [Unknown]
  - Blood glucose increased [Unknown]
  - Dyspnoea [Unknown]
  - Pollakiuria [Unknown]
  - Hypophagia [Unknown]
  - Viral infection [Unknown]
  - Chest pain [Unknown]
  - Dizziness [Unknown]
  - Fatigue [Unknown]
  - Anaemia [Unknown]
